FAERS Safety Report 21800667 (Version 1)
Quarter: 2022Q4

REPORT INFORMATION
  Report Type: Spontaneous
  Country: CN (occurrence: CN)
  Receive Date: 20221230
  Receipt Date: 20221230
  Transmission Date: 20230112
  Serious: Yes (Hospitalization)
  Sender: FDA-Public Use
  Company Number: CN-JNJFOC-20221262304

PATIENT
  Age: 72 Year
  Sex: Male

DRUGS (17)
  1. LAZERTINIB [Suspect]
     Active Substance: LAZERTINIB
     Indication: Small cell lung cancer metastatic
     Route: 065
  2. AMIVANTAMAB [Suspect]
     Active Substance: AMIVANTAMAB
     Indication: Small cell lung cancer metastatic
     Route: 065
  3. XARELTO [Suspect]
     Active Substance: RIVAROXABAN
     Indication: Venous thrombosis limb
     Route: 065
     Dates: start: 20221017, end: 20221202
  4. AMLODIPINE BESYLATE\PERINDOPRIL ARGININE [Concomitant]
     Active Substance: AMLODIPINE BESYLATE\PERINDOPRIL ARGININE
     Indication: Hypertension
  5. POLYMYXIN B [Concomitant]
     Active Substance: POLYMYXIN B
     Indication: Rash
  6. LEVOCARNITINE [Concomitant]
     Active Substance: LEVOCARNITINE
     Indication: Prophylaxis
  7. ALBUMIN PREPARED FROM HUMAN PLASMA (COLD ETHANOL FRACTIONATION) [Concomitant]
     Route: 042
  8. OMEPRAZOLE SODIUM [Concomitant]
     Active Substance: OMEPRAZOLE SODIUM
     Indication: Prophylaxis
  9. MAGNESIUM ISOGLYCYRRHIZINATE [Concomitant]
     Active Substance: MAGNESIUM ISOGLYCYRRHIZINATE
     Indication: Prophylaxis
     Route: 042
  10. HYDROCORTISONE ACETATE [Concomitant]
     Active Substance: HYDROCORTISONE ACETATE
     Indication: Rash
  11. ALFACALCIDOL [Concomitant]
     Active Substance: ALFACALCIDOL
     Indication: Hypocalcaemia
     Route: 048
  12. CALCIUM CARBONATE [Concomitant]
     Active Substance: CALCIUM CARBONATE
  13. VITAMIN D3 [Concomitant]
     Active Substance: CHOLECALCIFEROL
     Indication: Hypocalcaemia
  14. BOVINE BASIC FIBROBLAST GROWTH FACTOR [Concomitant]
     Indication: Mucosal inflammation
  15. SODIUM HYALURONATE [Concomitant]
     Active Substance: HYALURONATE SODIUM
     Indication: Conjunctivitis
  16. LEVOFLOXACIN [Concomitant]
     Active Substance: LEVOFLOXACIN
     Indication: Conjunctivitis
  17. KANG FU XIN [Concomitant]
     Indication: Mucosal inflammation

REACTIONS (1)
  - Coagulation test abnormal [Recovered/Resolved]

NARRATIVE: CASE EVENT DATE: 20221202
